FAERS Safety Report 20578395 (Version 1)
Quarter: 2022Q1

REPORT INFORMATION
  Report Type: Spontaneous
  Country: US (occurrence: US)
  Receive Date: 20220310
  Receipt Date: 20220310
  Transmission Date: 20220423
  Serious: Yes (Hospitalization)
  Sender: FDA-Public Use
  Company Number: US-SA-SAC20220309000034

PATIENT
  Age: 63 Year
  Sex: Female

DRUGS (35)
  1. DUPIXENT [Suspect]
     Active Substance: DUPILUMAB
     Dosage: 300 MG, QOW
  2. BROVANA [Concomitant]
     Active Substance: ARFORMOTEROL TARTRATE
  3. BIOTIN [Concomitant]
     Active Substance: BIOTIN
  4. DOXYCYCLINE HYCLATE [Concomitant]
     Active Substance: DOXYCYCLINE HYCLATE
  5. PANTOPRAZOLE [Concomitant]
     Active Substance: PANTOPRAZOLE
     Dosage: 40MG
  6. TRAMADOL [Concomitant]
     Active Substance: TRAMADOL
     Dosage: 50MG
  7. LEVAQUIN [Concomitant]
     Active Substance: LEVOFLOXACIN
     Dosage: 50MG
  8. LOSARTAN [Concomitant]
     Active Substance: LOSARTAN
     Dosage: 500MG
  9. HYDROCHLOROTHIAZIDE [Concomitant]
     Active Substance: HYDROCHLOROTHIAZIDE
     Dosage: 500MG
  10. AMLODIPINE [Concomitant]
     Active Substance: AMLODIPINE BESYLATE
     Dosage: 500MG
  11. ATORVASTATIN [Concomitant]
     Active Substance: ATORVASTATIN
     Dosage: 500MG
  12. VITAMIN C [Concomitant]
     Active Substance: ASCORBIC ACID
  13. VITAMIN D3 [Concomitant]
     Active Substance: CHOLECALCIFEROL
     Dosage: 1000MG
  14. DULOXETINE [Concomitant]
     Active Substance: DULOXETINE
     Dosage: 60MG
  15. ZYRTEC-D [Concomitant]
     Active Substance: CETIRIZINE HYDROCHLORIDE\PSEUDOEPHEDRINE HYDROCHLORIDE
     Dosage: 120MG
  16. PROMETHAZINE [Concomitant]
     Active Substance: PROMETHAZINE HYDROCHLORIDE
     Dosage: 25025MG
  17. LOPERAMIDE HYDROCHLORIDE [Concomitant]
     Active Substance: LOPERAMIDE HYDROCHLORIDE
     Dosage: 300MG
  18. GABAPENTIN [Concomitant]
     Active Substance: GABAPENTIN
     Dosage: 150MG
  19. ZANTAC [Concomitant]
     Active Substance: RANITIDINE HYDROCHLORIDE
     Dosage: 300MG
  20. CODEINE [Concomitant]
     Active Substance: CODEINE
     Dosage: 150MG
  21. CLOTRIMAZOLE [Concomitant]
     Active Substance: CLOTRIMAZOLE
  22. TESSALON [Concomitant]
     Active Substance: BENZONATATE
     Dosage: 100MG
  23. SINGULAIR [Concomitant]
     Active Substance: MONTELUKAST SODIUM
     Dosage: 100MG
  24. PROAIR HFA [Concomitant]
     Active Substance: ALBUTEROL SULFATE
     Dosage: 10MG
  25. XOPENEX [Concomitant]
     Active Substance: LEVALBUTEROL HYDROCHLORIDE
     Dosage: 025MG
  26. PULMICORT TURBUHALER [Concomitant]
     Active Substance: BUDESONIDE
     Dosage: 125MG
  27. IPRATROPIUM [Concomitant]
     Active Substance: IPRATROPIUM
     Dosage: 03MG
  28. ALBUTEROL [Concomitant]
     Active Substance: ALBUTEROL
     Dosage: 03MG
  29. FLUTICASONE PROPIONATE [Concomitant]
     Active Substance: FLUTICASONE PROPIONATE
     Dosage: 03MG
  30. EPIPEN [Concomitant]
     Active Substance: EPINEPHRINE
     Dosage: 025MG
  31. ARNUITY ELLIPTA [Concomitant]
     Active Substance: FLUTICASONE FUROATE
     Dosage: 03MG
  32. PREDNISONE [Concomitant]
     Active Substance: PREDNISONE
     Dosage: 250MG
  33. CEFUROXIME [Concomitant]
     Active Substance: CEFUROXIME
     Dosage: 5MG
  34. SPIRIVA [Concomitant]
     Active Substance: TIOTROPIUM BROMIDE MONOHYDRATE
  35. ADVAIR HFA [Concomitant]
     Active Substance: FLUTICASONE PROPIONATE\SALMETEROL XINAFOATE
     Dosage: 05MG

REACTIONS (2)
  - Dehydration [Not Recovered/Not Resolved]
  - Vomiting [Not Recovered/Not Resolved]

NARRATIVE: CASE EVENT DATE: 20220228
